FAERS Safety Report 8536842-0 (Version None)
Quarter: 2012Q3

REPORT INFORMATION
  Report Type: 
  Country: None (occurrence: None)
  Receive Date: 20120725
  Receipt Date: 20120718
  Transmission Date: 20120928
  Serious: Yes (Hospitalization)
  Sender: FDA-Public Use
  Company Number: JP-SANOFI-AVENTIS-2012SA052130

PATIENT
  Age: 69 Year
  Sex: Male

DRUGS (4)
  1. FLUOROURACIL [Suspect]
     Dosage: ADMINISTERED 600 MG/M2/DAY ON DAYS 1 TO 5 OF 28 DAY CYCLE, TOTAL 2 CYCLES GIVEN
     Route: 065
     Dates: start: 20100601, end: 20100801
  2. DOCETAXEL [Suspect]
     Dosage: ADMINISTERED 50 MG/M2/DAY, ON DAY 1 OF THE 28 DAY CYCLE, 2 CYCLES GIVEN IN TOTAL.
     Route: 065
     Dates: start: 20100601, end: 20100801
  3. CISPLATIN [Suspect]
     Dosage: ADMINISTERED 60 MG/M2/ DAY ON DAY 4 OF 28 DAY CYCLE, TOTAL 2 CYCLES GIVEN
     Route: 065
     Dates: start: 20100601, end: 20100801
  4. THERAPEUTIC RADIOPHARMACEUTICALS [Suspect]
     Dosage: TOTAL 60 GY RADIOTHERAPY WITH RADIATION DOSE OF 2 GY/DAILY FOR TWO CYLES OF 28 DAYS EACH
     Route: 065
     Dates: start: 20100601, end: 20100801

REACTIONS (9)
  - PYREXIA [None]
  - WHITE BLOOD CELL COUNT INCREASED [None]
  - DYSPHAGIA [None]
  - PNEUMATOSIS [None]
  - OROPHARYNGEAL PAIN [None]
  - C-REACTIVE PROTEIN INCREASED [None]
  - PHARYNGEAL FISTULA [None]
  - PHARYNGEAL DISORDER [None]
  - LOCAL SWELLING [None]
